FAERS Safety Report 20013917 (Version 3)
Quarter: 2021Q4

REPORT INFORMATION
  Report Type: Report from Study
  Country: CA (occurrence: CA)
  Receive Date: 20211029
  Receipt Date: 20211103
  Transmission Date: 20220303
  Serious: Yes (Hospitalization, Other)
  Sender: FDA-Public Use
  Company Number: CA-HLS-202108696

PATIENT
  Age: 45 Year
  Sex: Female

DRUGS (14)
  1. CLOZARIL [Suspect]
     Active Substance: CLOZAPINE
     Indication: Product used for unknown indication
     Route: 048
     Dates: start: 20211014, end: 20211028
  2. CLOZARIL [Suspect]
     Active Substance: CLOZAPINE
     Indication: Product used for unknown indication
     Route: 048
     Dates: start: 20211014
  3. CLOZARIL [Suspect]
     Active Substance: CLOZAPINE
     Indication: Product used for unknown indication
     Route: 048
     Dates: start: 20211016
  4. ABILIFY [Concomitant]
     Active Substance: ARIPIPRAZOLE
     Indication: Product used for unknown indication
     Dosage: FAILED TRIAL UPTO 20 MG
     Route: 065
  5. RISPERIDONE [Suspect]
     Active Substance: RISPERIDONE
     Indication: Product used for unknown indication
     Route: 065
  6. ATIVAN [Concomitant]
     Active Substance: LORAZEPAM
     Dosage: ORAL /SUBLINGUAL EVERY 1 HOUR AS NEEDED
     Route: 065
     Dates: start: 20210924
  7. COVID-19 vaccine [Concomitant]
     Dosage: FOR 1 DOSE
     Route: 030
     Dates: start: 20201112
  8. AMLODIPINE [Concomitant]
     Active Substance: AMLODIPINE BESYLATE
     Indication: Product used for unknown indication
     Route: 048
     Dates: start: 20210927
  9. ACETAMINOPHEN [Concomitant]
     Active Substance: ACETAMINOPHEN
     Indication: Pyrexia
     Dosage: EVERY 6 HOUR
     Route: 048
     Dates: start: 20211025
  10. DIOVAN [Concomitant]
     Active Substance: VALSARTAN
     Indication: Product used for unknown indication
     Route: 048
     Dates: start: 20211005
  11. POLYETHYLENE GLYCOL [Concomitant]
     Active Substance: POLYETHYLENE GLYCOL
     Indication: Constipation
     Dosage: AS NEEDED
     Route: 048
     Dates: start: 20211014
  12. OLANZAPINE [Concomitant]
     Active Substance: OLANZAPINE
     Indication: Product used for unknown indication
     Dosage: AS NEEDED IF PATIENT REFUSES ABILIFY 5 MG DAILY
     Route: 030
     Dates: start: 20210927
  13. LOXAPINE [Concomitant]
     Active Substance: LOXAPINE
     Indication: Agitation
     Dosage: EVERY 6 HOURS AS NEEDED
     Route: 030
     Dates: start: 20210927
  14. LOXAPINE [Concomitant]
     Active Substance: LOXAPINE
     Indication: Agitation
     Dosage: EVERY 6 HOURS AS NEEDED
     Route: 048
     Dates: start: 20210927

REACTIONS (7)
  - C-reactive protein increased [Unknown]
  - Fear of disease [Unknown]
  - Heart rate increased [Unknown]
  - Hypertension [Unknown]
  - Myocarditis [Unknown]
  - Pyrexia [Unknown]
  - Troponin T increased [Unknown]

NARRATIVE: CASE EVENT DATE: 20211024
